FAERS Safety Report 6114777-0 (Version None)
Quarter: 2009Q1

REPORT INFORMATION
  Report Type: 
  Country: None (occurrence: None)
  Receive Date: 20090313
  Receipt Date: 20090310
  Transmission Date: 20090719
  Serious: Yes (Disabling, Other)
  Sender: FDA-Public Use
  Company Number: FI-BAYER-200913722GPV

PATIENT
  Age: 39 Year
  Sex: Male

DRUGS (2)
  1. CIPROFLOXACIN HCL [Suspect]
     Indication: BORRELIA INFECTION
     Dosage: UNIT DOSE: 500 MG
     Route: 048
     Dates: start: 20000919, end: 20000927
  2. ROXIBION [Concomitant]
     Indication: BORRELIA INFECTION
     Dosage: UNIT DOSE: 150 MG
     Route: 048
     Dates: start: 20000817, end: 20001019

REACTIONS (15)
  - ABDOMINAL PAIN [None]
  - ALLODYNIA [None]
  - DYSPEPSIA [None]
  - ERYTHEMA [None]
  - HEADACHE [None]
  - HEART RATE INCREASED [None]
  - HYPERAESTHESIA [None]
  - MUSCLE SPASMS [None]
  - MYOSITIS [None]
  - OEDEMA PERIPHERAL [None]
  - PAIN [None]
  - PAIN IN EXTREMITY [None]
  - POLYNEUROPATHY [None]
  - STRESS [None]
  - TENDON PAIN [None]
